FAERS Safety Report 18620835 (Version 2)
Quarter: 2020Q4

REPORT INFORMATION
  Report Type: Spontaneous
  Country: FR (occurrence: FR)
  Receive Date: 20201215
  Receipt Date: 20201230
  Transmission Date: 20210114
  Serious: Yes (Other)
  Sender: FDA-Public Use
  Company Number: FR-ALXN-A202018357

PATIENT
  Age: 26 Year
  Sex: Female
  Weight: 78 kg

DRUGS (2)
  1. STRENSIQ [Suspect]
     Active Substance: ASFOTASE ALFA
     Indication: HYPOPHOSPHATASIA
     Dosage: 1 MG/KG , QD
     Route: 065
  2. STRENSIQ [Suspect]
     Active Substance: ASFOTASE ALFA
     Dosage: 80 MG , QIW
     Route: 065

REACTIONS (5)
  - Musculoskeletal stiffness [Recovering/Resolving]
  - Spinal ligament ossification [Recovering/Resolving]
  - Spinal cord compression [Recovering/Resolving]
  - Neck pain [Recovering/Resolving]
  - Pyramidal tract syndrome [Recovering/Resolving]
